FAERS Safety Report 6458389-8 (Version None)
Quarter: 2009Q4

REPORT INFORMATION
  Report Type: 
  Country: None (occurrence: None)
  Receive Date: 20091125
  Receipt Date: 20091120
  Transmission Date: 20100525
  Serious: Yes (Other)
  Sender: FDA-Public Use
  Company Number: FR-SANOFI-AVENTIS-200913883FR

PATIENT
  Age: 55 Year
  Sex: Female

DRUGS (5)
  1. DOCETAXEL [Suspect]
     Route: 042
     Dates: start: 20080222, end: 20080403
  2. FLUOROURACIL [Suspect]
     Dosage: DOSE UNIT: 50 MG/ML
     Route: 042
     Dates: start: 20071218, end: 20080131
  3. HERCEPTIN [Suspect]
     Dosage: DOSE UNIT: 150 MG
     Route: 042
     Dates: start: 20080222, end: 20080616
  4. ENDOXAN [Suspect]
     Dosage: DOSE UNIT: 500 MG
     Route: 042
     Dates: start: 20071218, end: 20080131
  5. FARMORUBICINE [Suspect]
     Indication: BREAST CANCER
     Route: 042
     Dates: start: 20071218, end: 20080131

REACTIONS (1)
  - CONGESTIVE CARDIOMYOPATHY [None]
